FAERS Safety Report 9555341 (Version 1)
Quarter: 2013Q3

REPORT INFORMATION
  Report Type: Spontaneous
  Country: US (occurrence: None)
  Receive Date: 20130925
  Receipt Date: 20130925
  Transmission Date: 20140515
  Serious: Yes (Life-Threatening, Hospitalization)
  Sender: FDA-Public Use
  Company Number: None

PATIENT
  Age: 48 Year
  Sex: Male
  Weight: 100 kg

DRUGS (1)
  1. GADOPENTETATE DIMEGLUMINE [Suspect]
     Indication: SCAN WITH CONTRAST
     Route: 042
     Dates: start: 20130516, end: 20130516

REACTIONS (12)
  - Anaphylactic reaction [None]
  - Face oedema [None]
  - Wheezing [None]
  - Dysphagia [None]
  - Urticaria [None]
  - Angioedema [None]
  - Rash [None]
  - Pruritus [None]
  - Hypotension [None]
  - Abdominal pain [None]
  - Laryngeal oedema [None]
  - Flushing [None]
